FAERS Safety Report 18663627 (Version 2)
Quarter: 2021Q1

REPORT INFORMATION
  Report Type: Not Available
  Country: US (occurrence: US)
  Receive Date: 20201225
  Receipt Date: 20210115
  Transmission Date: 20210419
  Serious: No
  Sender: FDA-Public Use
  Company Number: US-NEUROCRINE BIOSCIENCES INC.-2020NBI04613

PATIENT
  Age: 71 Year
  Sex: Female

DRUGS (16)
  1. NEXIUM [Concomitant]
     Active Substance: ESOMEPRAZOLE MAGNESIUM
  2. AIMOVIG [Concomitant]
     Active Substance: ERENUMAB-AOOE
  3. LIPITOR [Concomitant]
     Active Substance: ATORVASTATIN CALCIUM
  4. VITAMIN D3 [Concomitant]
     Active Substance: CHOLECALCIFEROL
  5. ZOFRAN [Concomitant]
     Active Substance: ONDANSETRON HYDROCHLORIDE
  6. NEUPRO [Concomitant]
     Active Substance: ROTIGOTINE
     Dosage: 4MG/24 HOUR PATCH
  7. SINEMET CR [Concomitant]
     Active Substance: CARBIDOPA\LEVODOPA
     Dosage: 25?100 MG TABLET
  8. PRINIVIL [Concomitant]
     Active Substance: LISINOPRIL
  9. ACETAMINOPHEN EXTRA STRENGTH [Concomitant]
     Active Substance: ACETAMINOPHEN
  10. VISTARIL [Concomitant]
     Active Substance: HYDROXYZINE PAMOATE
  11. VITAMIN B12 [Concomitant]
     Active Substance: CYANOCOBALAMIN
  12. NITROSTAT [Concomitant]
     Active Substance: NITROGLYCERIN
  13. INGREZZA [Suspect]
     Active Substance: VALBENAZINE
     Indication: TARDIVE DYSKINESIA
     Route: 048
     Dates: start: 20181211
  14. ASPIRIN 81 [Concomitant]
     Active Substance: ASPIRIN
  15. MOBIC [Concomitant]
     Active Substance: MELOXICAM
  16. ZESTRIL [Concomitant]
     Active Substance: LISINOPRIL

REACTIONS (1)
  - Illness [Unknown]
